FAERS Safety Report 20602531 (Version 1)
Quarter: 2022Q1

REPORT INFORMATION
  Report Type: Spontaneous
  Country: US (occurrence: US)
  Receive Date: 20220316
  Receipt Date: 20220316
  Transmission Date: 20220423
  Serious: Yes (Other)
  Sender: FDA-Public Use
  Company Number: US-BAUSCH-BL-2022-006586

PATIENT
  Sex: Female

DRUGS (1)
  1. UCERIS [Suspect]
     Active Substance: BUDESONIDE
     Indication: Rectal haemorrhage
     Dosage: TAKING IT EVERY DAY FOR OVER A YEAR
     Route: 054

REACTIONS (5)
  - Colon operation [Unknown]
  - Intestinal anastomosis [Unknown]
  - Withdrawal syndrome [Unknown]
  - Malaise [Unknown]
  - Therapy interrupted [Unknown]

NARRATIVE: CASE EVENT DATE: 20220301
